FAERS Safety Report 8831469 (Version 2)
Quarter: 2013Q1

REPORT INFORMATION
  Report Type: Report from Study
  Country: US (occurrence: US)
  Receive Date: 20121008
  Receipt Date: 20130325
  Transmission Date: 20140127
  Serious: Yes (Death, Hospitalization)
  Sender: FDA-Public Use
  Company Number: US-GLAXOSMITHKLINE-A0990606B

PATIENT
  Age: 52 Year
  Sex: Male
  Weight: 56.7 kg

DRUGS (7)
  1. PAZOPANIB [Suspect]
     Indication: GASTROINTESTINAL STROMAL TUMOUR
     Dosage: 800MG PER DAY
     Dates: start: 20120808
  2. COLACE [Concomitant]
     Route: 048
  3. FENTANYL PATCH [Concomitant]
     Route: 062
  4. LACTULOSE [Concomitant]
     Route: 048
  5. MIRALAX [Concomitant]
     Route: 048
  6. OXYCODONE [Concomitant]
     Route: 048
  7. SENNA [Concomitant]
     Route: 048

REACTIONS (3)
  - Rectal haemorrhage [Recovering/Resolving]
  - Gastrointestinal haemorrhage [Unknown]
  - Death [Fatal]
